FAERS Safety Report 4631091-0 (Version None)
Quarter: 2005Q2

REPORT INFORMATION
  Report Type: 
  Country: None (occurrence: None)
  Receive Date: 20050406
  Receipt Date: 20050406
  Transmission Date: 20051028
  Serious: Yes (Hospitalization)
  Sender: FDA-Public Use
  Company Number: None

PATIENT
  Age: 96 Year
  Sex: Female
  Weight: 60.8 kg

DRUGS (7)
  1. LASIX [Suspect]
     Indication: HYPERTENSION
     Dosage: 40 MG PO DAILY; CHRONIC
     Route: 048
  2. SPIRONOLACTONE [Suspect]
     Indication: HYPERTENSION
     Dosage: 50 MG PO DAILY; CHRONIC
     Route: 048
  3. CARDIZEM [Concomitant]
  4. PRILOSEC [Concomitant]
  5. COLCHICINE [Concomitant]
  6. AGGRENOX [Concomitant]
  7. DARVOCET [Concomitant]

REACTIONS (9)
  - ASCITES [None]
  - ASTHENIA [None]
  - ATRIAL FIBRILLATION [None]
  - CRYPTOGENIC CIRRHOSIS [None]
  - DECREASED APPETITE [None]
  - GENERALISED OEDEMA [None]
  - HYPERKALAEMIA [None]
  - RENAL FAILURE ACUTE [None]
  - WEIGHT DECREASED [None]
